FAERS Safety Report 24313247 (Version 5)
Quarter: 2025Q2

REPORT INFORMATION
  Report Type: Spontaneous
  Country: US (occurrence: US)
  Receive Date: 20240912
  Receipt Date: 20250624
  Transmission Date: 20250717
  Serious: Yes (Hospitalization)
  Sender: CSL BEHRING
  Company Number: US-BEH-2024178387

PATIENT
  Age: 47 Year
  Sex: Female

DRUGS (31)
  1. HIZENTRA [Suspect]
     Active Substance: HUMAN IMMUNOGLOBULIN G
     Indication: Immunodeficiency common variable
     Dosage: 4 G, BIW
     Route: 058
     Dates: start: 20240406
  2. HIZENTRA [Suspect]
     Active Substance: HUMAN IMMUNOGLOBULIN G
     Dosage: 40 ML (8G), BIW
     Route: 058
  3. HIZENTRA [Suspect]
     Active Substance: HUMAN IMMUNOGLOBULIN G
     Dosage: 4 G, BIW
     Route: 058
     Dates: start: 20240406
  4. AMBIEN CR [Concomitant]
     Active Substance: ZOLPIDEM TARTRATE
  5. BUMEX [Concomitant]
     Active Substance: BUMETANIDE
  6. BUSPIRONE HCL [Concomitant]
     Active Substance: BUSPIRONE HYDROCHLORIDE
  7. CARAFATE [Concomitant]
     Active Substance: SUCRALFATE
  8. DEXILANT [Concomitant]
     Active Substance: DEXLANSOPRAZOLE
  9. DEXILANT [Concomitant]
     Active Substance: DEXLANSOPRAZOLE
  10. DUONEB [Concomitant]
     Active Substance: ALBUTEROL SULFATE\IPRATROPIUM BROMIDE
  11. FERROUS GLUCONATE [Concomitant]
     Active Substance: FERROUS GLUCONATE
  12. JARDIANCE [Concomitant]
     Active Substance: EMPAGLIFLOZIN
  13. LEVOTHYROXINE SODIUM [Concomitant]
     Active Substance: LEVOTHYROXINE SODIUM
  14. LIPITOR [Concomitant]
     Active Substance: ATORVASTATIN CALCIUM
  15. METHENAMINE HIPPURATE [Concomitant]
     Active Substance: METHENAMINE HIPPURATE
  16. METOCLOPRAMIDE [Concomitant]
     Active Substance: METOCLOPRAMIDE
  17. MIRTAZAPINE [Concomitant]
     Active Substance: MIRTAZAPINE
  18. MIRTAZAPINE [Concomitant]
     Active Substance: MIRTAZAPINE
  19. MYRBETRIQ [Concomitant]
     Active Substance: MIRABEGRON
  20. ONDANSETRON [Concomitant]
     Active Substance: ONDANSETRON
  21. PLAVIX [Concomitant]
     Active Substance: CLOPIDOGREL BISULFATE
  22. Pramipexole dihydrochloride watson [Concomitant]
  23. PRILOSEC [Concomitant]
     Active Substance: OMEPRAZOLE MAGNESIUM
  24. PROTONIX [Concomitant]
     Active Substance: PANTOPRAZOLE SODIUM
  25. REGLAN [Concomitant]
     Active Substance: METOCLOPRAMIDE HYDROCHLORIDE
  26. TEMAZEPAM [Concomitant]
     Active Substance: TEMAZEPAM
  27. TOVIAZ [Concomitant]
     Active Substance: FESOTERODINE FUMARATE
  28. TRAZODONE HCL [Concomitant]
     Active Substance: TRAZODONE HYDROCHLORIDE
  29. VENTOLIN [Concomitant]
     Active Substance: ALBUTEROL SULFATE
  30. XARELTO [Concomitant]
     Active Substance: RIVAROXABAN
  31. METOPROLOL TARTRATE [Concomitant]
     Active Substance: METOPROLOL TARTRATE

REACTIONS (5)
  - COVID-19 [Not Recovered/Not Resolved]
  - Illness [Unknown]
  - Product dose omission issue [Unknown]
  - Therapy interrupted [Not Recovered/Not Resolved]
  - Respiratory failure [Not Recovered/Not Resolved]

NARRATIVE: CASE EVENT DATE: 20240801
